FAERS Safety Report 5207161-5 (Version None)
Quarter: 2007Q1

REPORT INFORMATION
  Report Type: 
  Country: None (occurrence: None)
  Receive Date: 20070112
  Receipt Date: 20070105
  Transmission Date: 20070707
  Serious: Yes (Other)
  Sender: FDA-Public Use
  Company Number: CZ-AVENTIS-200622140GDDC

PATIENT

DRUGS (2)
  1. INSULIN GLARGINE [Suspect]
     Indication: DIABETES MELLITUS INSULIN-DEPENDENT
     Route: 064
  2. SHORT ACTING INSULIN [Suspect]
     Indication: DIABETES MELLITUS INSULIN-DEPENDENT
     Route: 064

REACTIONS (3)
  - DIABETIC FOETOPATHY [None]
  - DRUG EXPOSURE DURING PREGNANCY [None]
  - DYSPNOEA [None]
